FAERS Safety Report 8995354 (Version 1)
Quarter: 2013Q1

REPORT INFORMATION
  Report Type: Spontaneous
  Country: US (occurrence: US)
  Receive Date: 20130103
  Receipt Date: 20130103
  Transmission Date: 20140127
  Serious: No
  Sender: FDA-Public Use
  Company Number: US-ABBOTT-12P-163-0926745-00

PATIENT
  Sex: Female
  Weight: 63.56 kg

DRUGS (3)
  1. SYNTHROID [Suspect]
     Indication: AUTOIMMUNE THYROIDITIS
     Dates: start: 2002
  2. CYTOMEL [Concomitant]
     Indication: AUTOIMMUNE THYROIDITIS
  3. DIAZEPAM [Concomitant]
     Indication: ANXIETY

REACTIONS (1)
  - Dysgeusia [Recovered/Resolved]
